FAERS Safety Report 7089278-6 (Version None)
Quarter: 2010Q4

REPORT INFORMATION
  Report Type: 
  Country: None (occurrence: None)
  Receive Date: 20101029
  Receipt Date: 20101021
  Transmission Date: 20110411
  Serious: Yes (Death)
  Sender: FDA-Public Use
  Company Number: 020771

PATIENT
  Sex: Female

DRUGS (6)
  1. KEPPRA [Suspect]
     Indication: EPILEPSY
     Dosage: (125 MG QD ORAL)
     Route: 048
     Dates: start: 20101011, end: 20101015
  2. LIORESAL [Concomitant]
  3. LOSEC /00661201/ [Concomitant]
  4. FRISIUM [Concomitant]
  5. MUCOMYST [Concomitant]
  6. ORFIRIL /00228501/ [Concomitant]

REACTIONS (1)
  - RESUSCITATION [None]
